FAERS Safety Report 8399410-X (Version None)
Quarter: 2012Q2

REPORT INFORMATION
  Report Type: 
  Country: None (occurrence: None)
  Receive Date: 20120323
  Receipt Date: 20110321
  Transmission Date: 20120825
  Serious: Yes (Other)
  Sender: FDA-Public Use
  Company Number: 163-21880-11020698

PATIENT
  Age: 77 Year
  Sex: Male

DRUGS (5)
  1. SIMVASTATIN [Concomitant]
  2. ASAS (ACETYLSALICYLIC ACID) [Concomitant]
  3. REVLIMID [Suspect]
     Indication: MULTIPLE MYELOMA
     Dosage: 25 MG, DAILY, PO
     Route: 048
     Dates: start: 20100215, end: 20101001
  4. RESTORIL [Concomitant]
  5. CYMBALTA [Concomitant]

REACTIONS (1)
  - NEUTROPHIL COUNT DECREASED [None]
